FAERS Safety Report 12136118 (Version 6)
Quarter: 2016Q2

REPORT INFORMATION
  Report Type: Report from Study
  Country: PL (occurrence: PL)
  Receive Date: 20160302
  Receipt Date: 20160622
  Transmission Date: 20160815
  Serious: Yes (Hospitalization)
  Sender: FDA-Public Use
  Company Number: PL-ROCHE-1717102

PATIENT
  Age: 68 Year
  Sex: Male
  Weight: 94 kg

DRUGS (15)
  1. OBINUTUZUMAB [Suspect]
     Active Substance: OBINUTUZUMAB
     Dosage: (C1D8)
     Route: 042
     Dates: start: 20150115, end: 20150115
  2. PERFALGAN [Concomitant]
     Active Substance: ACETAMINOPHEN
     Indication: PROPHYLAXIS
     Dosage: HE RECEIVED DOSES ON 22/JAN/2015, 05/FEB/2015, 05/MAR/2015, 02/APR/2015 AND 30/APR/2015.
     Route: 042
     Dates: start: 20150122, end: 20150430
  3. OBINUTUZUMAB [Suspect]
     Active Substance: OBINUTUZUMAB
     Dosage: (C5D1)
     Route: 042
     Dates: start: 20150430, end: 20150430
  4. OBINUTUZUMAB [Suspect]
     Active Substance: OBINUTUZUMAB
     Dosage: (C6D1)-LAST DOSE OF OBINUTUZUMAB PRIOR SAE
     Route: 042
     Dates: start: 20150528, end: 20150528
  5. OBINUTUZUMAB [Suspect]
     Active Substance: OBINUTUZUMAB
     Dosage: (C1D2)
     Route: 042
     Dates: start: 20150108, end: 20150108
  6. OBINUTUZUMAB [Suspect]
     Active Substance: OBINUTUZUMAB
     Dosage: (C4D1)
     Route: 042
     Dates: start: 20150402, end: 20150402
  7. AMERTIL [Concomitant]
     Indication: PROPHYLAXIS
     Dosage: HE RECEIVED DOSES ON 07/JAN/2015, 08/JAN/2015, 15/JAN/2015, 22/JAN/2015, 05/FEB/2015, 05/MAR/2015, 0
     Route: 048
     Dates: start: 20150107, end: 20150430
  8. OBINUTUZUMAB [Suspect]
     Active Substance: OBINUTUZUMAB
     Dosage: (C3D1)
     Route: 042
     Dates: start: 20150305, end: 20150305
  9. CLEMASTINE [Concomitant]
     Active Substance: CLEMASTINE
     Indication: PROPHYLAXIS
     Dosage: HE RECEIVED DOSES ON 07/JAN/2015, 08/JAN/2015, 15/JAN/2015, 22/JAN/2015, 05/FEB/2015, 05/MAR/2015, 0
     Route: 042
     Dates: start: 20150107, end: 20150430
  10. DEXAVEN [Concomitant]
     Active Substance: DEXAMETHASONE
     Indication: PROPHYLAXIS
     Dosage: HE RECEIVED DOSES ON 07/JAN/2015, 08/JAN/2015, 15/JAN/2015, 22/JAN/2015, 05/FEB/2015, 05/MAR/2015, 0
     Route: 042
     Dates: start: 20150107, end: 20150430
  11. PARACETAMOL [Concomitant]
     Active Substance: ACETAMINOPHEN
     Indication: PROPHYLAXIS
     Route: 042
     Dates: start: 20150107, end: 20150108
  12. OBINUTUZUMAB [Suspect]
     Active Substance: OBINUTUZUMAB
     Indication: CHRONIC LYMPHOCYTIC LEUKAEMIA
     Dosage: (C1D1)
     Route: 042
     Dates: start: 20150107, end: 20150107
  13. OBINUTUZUMAB [Suspect]
     Active Substance: OBINUTUZUMAB
     Dosage: (C1D15)
     Route: 042
     Dates: start: 20150122, end: 20150122
  14. OBINUTUZUMAB [Suspect]
     Active Substance: OBINUTUZUMAB
     Dosage: (C2D1)
     Route: 042
     Dates: start: 20150205, end: 20150205
  15. PARACETAMOL [Concomitant]
     Active Substance: ACETAMINOPHEN
     Route: 048
     Dates: start: 20150115, end: 20150115

REACTIONS (1)
  - Clear cell renal cell carcinoma [Recovered/Resolved]

NARRATIVE: CASE EVENT DATE: 20151130
